FAERS Safety Report 20601529 (Version 10)
Quarter: 2022Q3

REPORT INFORMATION
  Report Type: Spontaneous
  Country: GB (occurrence: GB)
  Receive Date: 20220316
  Receipt Date: 20220913
  Transmission Date: 20221026
  Serious: Yes (Other)
  Sender: FDA-Public Use
  Company Number: GB-NOVARTISPH-NVSC2022GB048342

PATIENT
  Age: 61 Year
  Sex: Female
  Weight: 60.1 kg

DRUGS (38)
  1. CLOZARIL [Suspect]
     Active Substance: CLOZAPINE
     Indication: Schizophrenia
     Dosage: 400 MG, QD (PM)
     Route: 048
     Dates: start: 20030116
  2. CLOZARIL [Suspect]
     Active Substance: CLOZAPINE
     Dosage: 400 MG, BID
     Route: 048
  3. CLOZARIL [Suspect]
     Active Substance: CLOZAPINE
     Dosage: 200 MG, BID
     Route: 048
  4. CLOZARIL [Suspect]
     Active Substance: CLOZAPINE
     Dosage: 400 MG, QD
     Route: 048
  5. CLOZARIL [Suspect]
     Active Substance: CLOZAPINE
     Dosage: 200 MG, BID
     Route: 048
  6. AMISULPRIDE [Suspect]
     Active Substance: AMISULPRIDE
     Indication: Product used for unknown indication
     Dosage: 200 MG, QD
     Route: 048
  7. AMISULPRIDE [Suspect]
     Active Substance: AMISULPRIDE
     Dosage: 400 MG, QD
     Route: 048
  8. AMISULPRIDE [Suspect]
     Active Substance: AMISULPRIDE
     Dosage: 400 MG, QD (200 MG, BID)
     Route: 048
  9. AMISULPRIDE [Suspect]
     Active Substance: AMISULPRIDE
     Dosage: 200 MG, QD
     Route: 048
  10. AMISULPRIDE [Suspect]
     Active Substance: AMISULPRIDE
     Dosage: 200 MG, QD (400 MG, BID)
     Route: 048
  11. AMISULPRIDE [Suspect]
     Active Substance: AMISULPRIDE
     Dosage: 800 MG, QD (400 MG , QD, 200 MG, BID)
     Route: 048
  12. AMISULPRIDE [Suspect]
     Active Substance: AMISULPRIDE
     Dosage: 1600 MG (200 MG BID)
     Route: 065
  13. CITALOPRAM [Suspect]
     Active Substance: CITALOPRAM HYDROBROMIDE
     Indication: Product used for unknown indication
     Dosage: 30 MG, QD
     Route: 048
  14. CITALOPRAM [Suspect]
     Active Substance: CITALOPRAM HYDROBROMIDE
     Dosage: 30 MG, QD
     Route: 048
  15. CITALOPRAM [Suspect]
     Active Substance: CITALOPRAM HYDROBROMIDE
     Dosage: 30 MG, QD (DAILY)
     Route: 048
  16. LORAZEPAM [Suspect]
     Active Substance: LORAZEPAM
     Indication: Product used for unknown indication
     Dosage: 1 MG, PRN
     Route: 048
  17. LORAZEPAM [Suspect]
     Active Substance: LORAZEPAM
     Dosage: 50 MG, BID
     Route: 048
  18. LORAZEPAM [Suspect]
     Active Substance: LORAZEPAM
     Dosage: 50 MG, BID (100 MILLIGRAM DAILY)
     Route: 048
  19. LORAZEPAM [Suspect]
     Active Substance: LORAZEPAM
     Dosage: 1 MG, PRN (1 MG, PRN , THERAPY START DATE AND END DATE : ASKU)
     Route: 048
  20. LORAZEPAM [Suspect]
     Active Substance: LORAZEPAM
     Dosage: 1 MG, PRN (AS NECESSARY)
     Route: 048
  21. LORAZEPAM [Suspect]
     Active Substance: LORAZEPAM
     Dosage: 50 MG, BID (100 MILLIGRAM DAILY)
     Route: 048
  22. LORAZEPAM [Suspect]
     Active Substance: LORAZEPAM
     Dosage: 1 MG (1 MG, PRN , THERAPY START DATE AND END DATE : ASKU)
     Route: 048
  23. PIRENZEPINE [Suspect]
     Active Substance: PIRENZEPINE
     Indication: Product used for unknown indication
     Dosage: 600 MG, QD
     Route: 065
  24. PIRENZEPINE [Suspect]
     Active Substance: PIRENZEPINE
     Dosage: 50 MG, BID
     Route: 048
  25. PIRENZEPINE [Suspect]
     Active Substance: PIRENZEPINE
     Dosage: 100 MG, QD, (50 MG, BID)
     Route: 048
  26. PIRENZEPINE [Suspect]
     Active Substance: PIRENZEPINE
     Dosage: 600 MG, QD, (600 MILLIGRAM DAILY; 50 MG, BID,UNIT DOSE : 200 MG)
     Route: 048
  27. PIRENZEPINE [Suspect]
     Active Substance: PIRENZEPINE
     Dosage: 200 MG (100 MG DAILY)
     Route: 048
  28. PIRENZEPINE [Suspect]
     Active Substance: PIRENZEPINE
     Dosage: 50 MG, BID (100 MG, DAILY)
     Route: 048
  29. PIRENZEPINE [Suspect]
     Active Substance: PIRENZEPINE
     Dosage: 600 MG, QD
     Route: 065
  30. PIRENZEPINE [Suspect]
     Active Substance: PIRENZEPINE
     Dosage: 1200 MG, QD (600 MG BID)
     Route: 065
  31. VALPROATE SODIUM [Suspect]
     Active Substance: VALPROATE SODIUM
     Indication: Product used for unknown indication
     Dosage: 1200 MG, QD
     Route: 048
  32. VALPROATE SODIUM [Suspect]
     Active Substance: VALPROATE SODIUM
     Dosage: 600 MG, BID
     Route: 048
  33. VALPROATE SODIUM [Suspect]
     Active Substance: VALPROATE SODIUM
     Dosage: 600 MG, QD
     Route: 048
  34. VALPROIC ACID [Suspect]
     Active Substance: VALPROIC ACID
     Indication: Product used for unknown indication
     Dosage: 1200 MG, QD, (600 MG, BID)
     Route: 048
  35. VALPROIC ACID [Suspect]
     Active Substance: VALPROIC ACID
     Dosage: 600 MG, QD, (600 MG, BID)
     Route: 048
  36. VALPROIC ACID [Suspect]
     Active Substance: VALPROIC ACID
     Dosage: 600 MG, QD
     Route: 048
  37. CLONAZEPAM [Suspect]
     Active Substance: CLONAZEPAM
     Indication: Schizophrenia
     Dosage: 200 MG, BID
     Route: 048
  38. CLONAZEPAM [Suspect]
     Active Substance: CLONAZEPAM
     Dosage: 400 MG, QD
     Route: 048
     Dates: start: 20030116

REACTIONS (3)
  - Neutrophil count abnormal [Recovering/Resolving]
  - Differential white blood cell count abnormal [Recovering/Resolving]
  - Off label use [Unknown]

NARRATIVE: CASE EVENT DATE: 20170118
